FAERS Safety Report 5535264-4 (Version None)
Quarter: 2007Q4

REPORT INFORMATION
  Report Type: 
  Country: None (occurrence: None)
  Receive Date: 20071204
  Receipt Date: 20071116
  Transmission Date: 20080405
  Serious: Yes (Death)
  Sender: FDA-Public Use
  Company Number: 2007S1012026

PATIENT
  Age: 33 Year
  Sex: Female

DRUGS (6)
  1. CYTARABINE [Suspect]
     Dates: start: 19820101
  2. CYCLOPHOSPHAMIDE [Suspect]
     Dates: start: 19820101
  3. ANTINEOPLASTICS [Concomitant]
  4. METHOTREXATE [Suspect]
     Indication: GRAFT VERSUS HOST DISEASE
  5. AZATHIOPRINE [Suspect]
     Indication: ACUTE GRAFT VERSUS HOST DISEASE
  6. PREDNISONE [Suspect]
     Indication: ACUTE GRAFT VERSUS HOST DISEASE

REACTIONS (3)
  - ACUTE GRAFT VERSUS HOST DISEASE IN SKIN [None]
  - GRAFT VERSUS HOST DISEASE [None]
  - LIP AND/OR ORAL CAVITY CANCER [None]
